FAERS Safety Report 7633360-9 (Version None)
Quarter: 2011Q3

REPORT INFORMATION
  Report Type: 
  Country: None (occurrence: None)
  Receive Date: 20110725
  Receipt Date: 20100924
  Transmission Date: 20111222
  Serious: No
  Sender: FDA-Public Use
  Company Number: US-BRISTOL-MYERS SQUIBB COMPANY-15307358

PATIENT

DRUGS (1)
  1. SPRYCEL [Suspect]
     Dosage: REDUCED TO 50MG; SPLIT 100 MG TAB IN HALF.

REACTIONS (1)
  - PLATELET COUNT DECREASED [None]
